FAERS Safety Report 22323830 (Version 1)
Quarter: 2023Q2

REPORT INFORMATION
  Report Type: Spontaneous
  Country: US (occurrence: None)
  Receive Date: 20230513
  Receipt Date: 20230513
  Transmission Date: 20230722
  Serious: No
  Sender: FDA-Public Use
  Company Number: None

PATIENT
  Age: 39 Year
  Sex: Female

DRUGS (1)
  1. MAVYRET [Suspect]
     Active Substance: GLECAPREVIR\PIBRENTASVIR
     Indication: Hepatitis C
     Dosage: OTHER QUANTITY : 100-400MG;?OTHER FREQUENCY : UNKNOWN;?
     Route: 048
     Dates: start: 202305

REACTIONS (2)
  - Therapy interrupted [None]
  - Imprisonment [None]

NARRATIVE: CASE EVENT DATE: 20230506
